FAERS Safety Report 10348043 (Version 1)
Quarter: 2014Q3

REPORT INFORMATION
  Report Type: Spontaneous
  Country: US (occurrence: US)
  Receive Date: 20140729
  Receipt Date: 20140729
  Transmission Date: 20150326
  Serious: Yes (Other)
  Sender: FDA-Public Use
  Company Number: US-TEVA-497222USA

PATIENT
  Sex: Female

DRUGS (1)
  1. COPAXONE [Suspect]
     Active Substance: GLATIRAMER ACETATE
     Indication: MULTIPLE SCLEROSIS

REACTIONS (5)
  - Migraine [Not Recovered/Not Resolved]
  - Progressive multiple sclerosis [Unknown]
  - Urticaria [Unknown]
  - Drug ineffective [Unknown]
  - Multiple sclerosis [Unknown]
